FAERS Safety Report 8889205 (Version 1)
Quarter: 2012Q4

REPORT INFORMATION
  Report Type: Report from Study
  Country: US (occurrence: US)
  Receive Date: 20121106
  Receipt Date: 20121106
  Transmission Date: 20130627
  Serious: Yes (Hospitalization, Disabling)
  Sender: FDA-Public Use
  Company Number: US-JNJFOC-20121100798

PATIENT
  Sex: Male
  Weight: 30.8 kg

DRUGS (7)
  1. REMICADE [Suspect]
     Indication: CROHN^S DISEASE
     Route: 042
     Dates: start: 20110607, end: 20120106
  2. CIMZIA [Concomitant]
     Dates: start: 20120120, end: 20120723
  3. HUMIRA [Concomitant]
     Dates: start: 201207
  4. FERROUS SULFATE [Concomitant]
  5. MULTIVITAMINS [Concomitant]
  6. TESTOSTERONE CYPIONATE [Concomitant]
  7. ANTIBIOTICS [Concomitant]
     Indication: INFLAMMATORY BOWEL DISEASE

REACTIONS (1)
  - Crohn^s disease [Recovered/Resolved]
